FAERS Safety Report 14083917 (Version 2)
Quarter: 2017Q4

REPORT INFORMATION
  Report Type: Spontaneous
  Country: HR (occurrence: HR)
  Receive Date: 20171013
  Receipt Date: 20171103
  Transmission Date: 20180321
  Serious: Yes (Other)
  Sender: FDA-Public Use
  Company Number: HR-SHENZHEN TECHDOW PHARMACEUTICAL CO. LTD-HR-2017TEC0000057

PATIENT
  Sex: Male

DRUGS (3)
  1. HEPARIN SODIUM INJECTION USP, PRESERVATIVE FREE [Suspect]
     Active Substance: HEPARIN SODIUM
     Indication: PRODUCT USED FOR UNKNOWN INDICATION
     Dosage: 5000 IU, UNK
     Route: 042
  2. PROTAMINE [Concomitant]
     Active Substance: PROTAMINE
     Indication: PRODUCT USED FOR UNKNOWN INDICATION
     Dosage: 25 MG, UNK
  3. TACHOSIL [Concomitant]
     Active Substance: FIBRINOGEN HUMAN\THROMBIN HUMAN
     Indication: PRODUCT USED FOR UNKNOWN INDICATION
     Dosage: UNK

REACTIONS (2)
  - Haematoma [Unknown]
  - Obstructive airways disorder [Unknown]
